FAERS Safety Report 9634126 (Version 1)
Quarter: 2013Q4

REPORT INFORMATION
  Report Type: Spontaneous
  Country: US (occurrence: US)
  Receive Date: 20131021
  Receipt Date: 20131021
  Transmission Date: 20140711
  Serious: No
  Sender: FDA-Public Use
  Company Number: US-009507513-1310USA008345

PATIENT
  Sex: Female

DRUGS (1)
  1. PROSCAR [Suspect]
     Dosage: 5 MG, ONCE
     Route: 048

REACTIONS (4)
  - Incorrect product storage [Unknown]
  - Accidental exposure to product [Unknown]
  - Drug administration error [Unknown]
  - No adverse event [Unknown]
